FAERS Safety Report 5818113-6 (Version None)
Quarter: 2008Q3

REPORT INFORMATION
  Report Type: 
  Country: None (occurrence: None)
  Receive Date: 20080722
  Receipt Date: 20071017
  Transmission Date: 20090109
  Serious: No
  Sender: FDA-Public Use
  Company Number: US-BAYER-US-2007-039260

PATIENT
  Age: 51 Year
  Sex: Female
  Weight: 91 kg

DRUGS (3)
  1. MAGNEVIST [Suspect]
     Indication: NUCLEAR MAGNETIC RESONANCE IMAGING
     Dosage: UNIT DOSE: 20 ML
     Route: 042
     Dates: start: 20071016, end: 20071016
  2. FENTANYL-100 [Concomitant]
  3. ANALGESICS [Concomitant]
     Indication: SEDATION

REACTIONS (1)
  - URTICARIA [None]
